FAERS Safety Report 13836089 (Version 6)
Quarter: 2018Q1

REPORT INFORMATION
  Report Type: Report from Study
  Country: CA (occurrence: CA)
  Receive Date: 20170804
  Receipt Date: 20180205
  Transmission Date: 20180508
  Serious: Yes (Hospitalization, Other)
  Sender: FDA-Public Use
  Company Number: CA-TAKEDA-2017TUS013669

PATIENT
  Age: 53 Year
  Sex: Male

DRUGS (6)
  1. DEXILANT [Suspect]
     Active Substance: DEXLANSOPRAZOLE
     Indication: PRODUCT USED FOR UNKNOWN INDICATION
     Dosage: 60 MG, QD
     Route: 065
  2. VEDOLIZUMAB [Suspect]
     Active Substance: VEDOLIZUMAB
     Indication: COLITIS ULCERATIVE
     Dosage: 300 MG, UNK
     Route: 042
     Dates: start: 20160920, end: 20161206
  3. MEZAVANT [Concomitant]
     Active Substance: MESALAMINE
     Dosage: UNK UNK, QD
  4. ZOCORT [Concomitant]
     Dosage: 20 MG, QD
  5. CALCIUM [Concomitant]
     Active Substance: CALCIUM
     Dosage: UNK UNK, QD
  6. ALTACE [Suspect]
     Active Substance: RAMIPRIL
     Indication: BLOOD PRESSURE MEASUREMENT
     Dosage: 10 MG, QD
     Route: 065

REACTIONS (10)
  - C-reactive protein increased [Unknown]
  - Colitis ulcerative [Unknown]
  - Pyrexia [Not Recovered/Not Resolved]
  - Weight decreased [Unknown]
  - Drug ineffective [Unknown]
  - Drug dose omission [Unknown]
  - Anaemia [Unknown]
  - Influenza like illness [Not Recovered/Not Resolved]
  - Malaise [Unknown]
  - Thyroid cancer [Unknown]

NARRATIVE: CASE EVENT DATE: 2017
